FAERS Safety Report 8535231-2 (Version None)
Quarter: 2012Q3

REPORT INFORMATION
  Report Type: 
  Country: None (occurrence: None)
  Receive Date: 20120725
  Receipt Date: 20120719
  Transmission Date: 20120928
  Serious: Yes (Life-Threatening, Hospitalization, Other)
  Sender: FDA-Public Use
  Company Number: CH-009507513-1207CHE007059

PATIENT

DRUGS (13)
  1. GLUCOPHAGE [Suspect]
     Indication: TYPE 2 DIABETES MELLITUS
     Dosage: 850 MG, QD
     Dates: start: 20110101, end: 20120501
  2. CONCOR [Concomitant]
     Dosage: 10 MG, QD
     Route: 048
     Dates: end: 20120501
  3. PLAVIX [Suspect]
     Indication: CEREBRAL INFARCTION
     Dosage: 75 MG, QD
     Route: 048
     Dates: start: 20110426, end: 20120511
  4. TAMSULOSIN HCL [Concomitant]
     Dosage: 400 MICROGRAM, QD
  5. ESCITALOPRAM [Suspect]
     Indication: BIPOLAR DISORDER
     Dosage: 10 MG, QD
     Route: 048
     Dates: start: 20110401
  6. FLECTOR [Suspect]
     Dosage: 1 DF, UNK
     Route: 003
     Dates: end: 20120501
  7. HALDOL [Concomitant]
     Dosage: UNK, PRN
     Route: 048
  8. REMERON [Suspect]
     Indication: BIPOLAR DISORDER
     Dosage: 30 MG, QD
     Route: 048
     Dates: start: 20120401
  9. TRIATEC COMP [Concomitant]
     Dosage: 2.5/12.5MG, QD
     Route: 048
     Dates: end: 20120501
  10. SEROQUEL [Concomitant]
     Dosage: 25 MG, QD
  11. ASPIRIN [Suspect]
     Indication: CEREBRAL INFARCTION
     Dosage: 100 MG, QD
     Route: 048
     Dates: start: 20110416
  12. ATORVASTATIN CALCIUM [Concomitant]
     Dosage: 40 MG, QD
     Route: 048
  13. LANTUS [Concomitant]
     Dosage: 4 IU
     Route: 058

REACTIONS (5)
  - HYPOTONIA [None]
  - MELAENA [None]
  - RENAL FAILURE ACUTE [None]
  - HAEMORRHAGIC ANAEMIA [None]
  - LOWER GASTROINTESTINAL HAEMORRHAGE [None]
